FAERS Safety Report 7040017-4 (Version None)
Quarter: 2010Q3

REPORT INFORMATION
  Report Type: 
  Country: None (occurrence: None)
  Receive Date: 20100921
  Receipt Date: 20100908
  Transmission Date: 20110219
  Serious: Yes (Life-Threatening, Other)
  Sender: FDA-Public Use
  Company Number: THRO-2009-00017

PATIENT
  Age: 65 Year
  Sex: Female
  Weight: 84.5 kg

DRUGS (1)
  1. RECOTHROM [Suspect]
     Indication: VASCULAR PSEUDOANEURYSM
     Dosage: 2000 IU, INTRA-ARTERIAL
     Route: 013
     Dates: start: 20091204, end: 20091204

REACTIONS (5)
  - GROIN PAIN [None]
  - MUSCULOSKELETAL DISCOMFORT [None]
  - PALLOR [None]
  - PULSE ABSENT [None]
  - THROMBOSIS [None]
